FAERS Safety Report 4300692-1 (Version None)
Quarter: 2004Q1

REPORT INFORMATION
  Report Type: 
  Country: None (occurrence: None)
  Receive Date: 20040209
  Receipt Date: 20040123
  Transmission Date: 20041129
  Serious: Yes (Hospitalization)
  Sender: FDA-Public Use
  Company Number: 2004SA000008

PATIENT
  Age: 34 Year
  Sex: Male
  Weight: 90 kg

DRUGS (9)
  1. THYMOGLOBULIN [Suspect]
     Indication: TRANSPLANT REJECTION
     Dosage: 100 MG;DAILY;INTRAVENOUS
     Route: 042
     Dates: start: 20031215, end: 20040119
  2. CYCLOSPORINE [Concomitant]
  3. PREDNISONE [Concomitant]
  4. EPOGEN [Concomitant]
  5. PROCARDIA XL [Concomitant]
  6. LABETALOL HCL [Concomitant]
  7. CELLCEPT [Concomitant]
  8. CYTOGAM [Concomitant]
  9. FTY 720 [Concomitant]

REACTIONS (3)
  - PYREXIA [None]
  - SERUM SICKNESS [None]
  - WHITE BLOOD CELL COUNT DECREASED [None]
